FAERS Safety Report 8303079-X (Version None)
Quarter: 2012Q2

REPORT INFORMATION
  Report Type: 
  Country: None (occurrence: None)
  Receive Date: 20120422
  Receipt Date: 20120412
  Transmission Date: 20120825
  Serious: Yes (Other)
  Sender: FDA-Public Use
  Company Number: FR-BRISTOL-MYERS SQUIBB COMPANY-16520538

PATIENT
  Age: 78 Year
  Sex: Female

DRUGS (6)
  1. PIASCLEDINE [Concomitant]
     Indication: HYPERTENSION
     Dosage: AVOCADO OIL UNSAPONIFIABLES AND SOYA OIL UNSAPONIFIABLES
  2. TEGRETOL [Suspect]
     Indication: BIPOLAR DISORDER
     Dates: start: 20110701
  3. ABILIFY [Suspect]
     Indication: BIPOLAR DISORDER
     Dosage: 10 MG MORNING AND 20 MG EVENING
     Route: 048
     Dates: start: 20110701
  4. LEVOTHYROXINE SODIUM [Concomitant]
     Indication: HYPOTHYROIDISM
     Dosage: LEVOTHYROX (LEVOTHYROXIN SODIUM) 75 MG MORNING
  5. FENOFIBRATE [Concomitant]
  6. COZAAR [Concomitant]
     Indication: HYPERTENSION

REACTIONS (2)
  - DELUSION [None]
  - DRUG INEFFECTIVE [None]
